FAERS Safety Report 19241093 (Version 1)
Quarter: 2021Q2

REPORT INFORMATION
  Report Type: Spontaneous
  Country: US (occurrence: US)
  Receive Date: 20210510
  Receipt Date: 20210510
  Transmission Date: 20210717
  Serious: No
  Sender: FDA-Public Use
  Company Number: None

PATIENT
  Sex: Male

DRUGS (1)
  1. COSENTYX [Suspect]
     Active Substance: SECUKINUMAB
     Indication: PSORIATIC ARTHROPATHY
     Dosage: OTHER FREQUENCY:EVERY 30 DAYS;?
     Route: 058
     Dates: start: 202011

REACTIONS (2)
  - Adverse drug reaction [None]
  - Drug ineffective [None]
